FAERS Safety Report 7597556-7 (Version None)
Quarter: 2011Q3

REPORT INFORMATION
  Report Type: 
  Country: None (occurrence: None)
  Receive Date: 20110708
  Receipt Date: 20110705
  Transmission Date: 20111222
  Serious: Yes (Hospitalization)
  Sender: FDA-Public Use
  Company Number: CA-ROXANE LABORATORIES, INC.-2011-RO-00943RO

PATIENT
  Age: 9 Year
  Sex: Female

DRUGS (11)
  1. TRIMETHOPRIM [Suspect]
     Indication: ANTIFUNGAL PROPHYLAXIS
  2. PREDNISONE [Suspect]
     Indication: WEGENER'S GRANULOMATOSIS
  3. METHOTREXATE [Suspect]
     Indication: WEGENER'S GRANULOMATOSIS
     Route: 048
  4. TRIMETHOPRIM [Suspect]
  5. PREDNISONE [Suspect]
  6. RITUXIMAB [Suspect]
  7. CYCLOPHOSPHAMIDE [Suspect]
     Indication: WEGENER'S GRANULOMATOSIS
     Route: 042
  8. PREDNISONE [Suspect]
  9. PREDNISONE [Suspect]
  10. MYCOPHENOLIC ACID [Suspect]
     Indication: WEGENER'S GRANULOMATOSIS
  11. RITUXIMAB [Suspect]
     Indication: WEGENER'S GRANULOMATOSIS

REACTIONS (1)
  - PNEUMOCYSTIS JIROVECI PNEUMONIA [None]
